FAERS Safety Report 24021106 (Version 2)
Quarter: 2024Q3

REPORT INFORMATION
  Report Type: Spontaneous
  Country: CN (occurrence: CN)
  Receive Date: 20240627
  Receipt Date: 20240701
  Transmission Date: 20241017
  Serious: Yes (Death, Other)
  Sender: BOEHRINGER INGELHEIM
  Company Number: CN-BoehringerIngelheim-2024-BI-036458

PATIENT
  Age: 67 Year
  Sex: Male

DRUGS (2)
  1. AFATINIB [Suspect]
     Active Substance: AFATINIB
     Indication: Non-small cell lung cancer
     Dosage: DAILY DOSE: 20 MILLIGRAM(S)
     Dates: start: 20230411
  2. AFATINIB [Suspect]
     Active Substance: AFATINIB
     Dosage: DAILY DOSE: 40 MILLIGRAM(S)

REACTIONS (4)
  - Bronchopulmonary aspergillosis [Fatal]
  - Diarrhoea [Unknown]
  - Mucosal ulceration [Unknown]
  - Therapy partial responder [Unknown]
